FAERS Safety Report 11798134 (Version 2)
Quarter: 2016Q1

REPORT INFORMATION
  Report Type: Spontaneous
  Country: US (occurrence: US)
  Receive Date: 20151203
  Receipt Date: 20160115
  Transmission Date: 20160525
  Serious: No
  Sender: FDA-Public Use
  Company Number: US-PFIZER INC-2015419797

PATIENT
  Age: 60 Year
  Sex: Female

DRUGS (3)
  1. HERCEPTIN [Concomitant]
     Active Substance: TRASTUZUMAB
     Indication: METASTATIC NEOPLASM
     Dosage: UNK
     Dates: start: 20130829, end: 20150205
  2. AROMASIN [Suspect]
     Active Substance: EXEMESTANE
     Indication: BREAST CANCER METASTATIC
     Dosage: 1 MG, DAILY
     Route: 048
     Dates: start: 20140314, end: 20150225
  3. PERJETA [Concomitant]
     Active Substance: PERTUZUMAB
     Indication: METASTATIC NEOPLASM
     Dosage: UNK
     Dates: start: 20130829, end: 20140828

REACTIONS (7)
  - Hypokinesia [Recovered/Resolved]
  - Fatigue [Recovered/Resolved]
  - Disease progression [Unknown]
  - Malaise [Recovered/Resolved]
  - Arthralgia [Recovered/Resolved]
  - Breast cancer metastatic [Unknown]
  - Musculoskeletal stiffness [Recovered/Resolved]
